FAERS Safety Report 7330766-2 (Version None)
Quarter: 2011Q1

REPORT INFORMATION
  Report Type: 
  Country: None (occurrence: None)
  Receive Date: 20110225
  Receipt Date: 20110225
  Transmission Date: 20110831
  Serious: Yes (Hospitalization)
  Sender: FDA-Public Use
  Company Number: None

PATIENT
  Age: 61 Year
  Sex: Male
  Weight: 85.1 kg

DRUGS (7)
  1. BENDAMUSTINE [Suspect]
     Indication: B-CELL SMALL LYMPHOCYTIC LYMPHOMA
     Dosage: 90MG/M^2 DAYS 1+2, IV
     Route: 042
     Dates: start: 20110207, end: 20110208
  2. BENDAMUSTINE [Suspect]
     Indication: CHRONIC LYMPHOCYTIC LEUKAEMIA
     Dosage: 90MG/M^2 DAYS 1+2, IV
     Route: 042
     Dates: start: 20110207, end: 20110208
  3. FOLIC ACID [Concomitant]
  4. RITUXIMAB [Suspect]
     Dosage: 375MG/M22, DAY 2, IV
     Route: 042
     Dates: start: 20110208
  5. ALLOPURINOL [Concomitant]
  6. DOXYCYCLINE [Concomitant]
  7. ACYCLOVIR [Concomitant]

REACTIONS (3)
  - INFLUENZA A VIRUS TEST POSITIVE [None]
  - FEBRILE NEUTROPENIA [None]
  - BACTERIAL TEST POSITIVE [None]
